FAERS Safety Report 9169324 (Version 4)
Quarter: 2013Q2

REPORT INFORMATION
  Report Type: Spontaneous
  Country: US (occurrence: US)
  Receive Date: 20130318
  Receipt Date: 20130517
  Transmission Date: 20140414
  Serious: Yes (Hospitalization)
  Sender: FDA-Public Use
  Company Number: US-B.I. PHARMACEUTICALS,INC./RIDGEFIELD-2013-BI-06719BP

PATIENT
  Age: 68 Year
  Sex: Female
  Weight: 90.72 kg

DRUGS (18)
  1. PRADAXA [Suspect]
     Indication: ATRIAL FIBRILLATION
     Dosage: 300 MG
     Route: 048
     Dates: end: 20111204
  2. LOPRESSOR [Concomitant]
     Dosage: 100 MG
  3. DIGOXIN [Concomitant]
     Dosage: 0.125 MG
  4. LASIX [Concomitant]
     Dosage: 80 MG
  5. NOVOLIN [Concomitant]
  6. MICRO-K [Concomitant]
  7. MAGNESIUM [Concomitant]
     Dosage: 800 MG
  8. DILTIAZEM [Concomitant]
     Dosage: 180 MG
  9. ATROVENT [Concomitant]
     Route: 055
  10. ADVAIR [Concomitant]
     Route: 055
  11. ASPIRIN [Concomitant]
     Dosage: 81 MG
  12. LEVEMIR [Concomitant]
     Dosage: 50 U
  13. IMDUR [Concomitant]
     Dosage: 40 MG
  14. NIACIN [Concomitant]
     Dosage: 500 MG
  15. NOVOLOG [Concomitant]
  16. DUONEB [Concomitant]
     Route: 055
  17. TYLENOL [Concomitant]
  18. ZAROXOLYN [Concomitant]
     Dosage: 2.5 MG

REACTIONS (3)
  - Upper gastrointestinal haemorrhage [Recovered/Resolved]
  - Haemorrhagic anaemia [Unknown]
  - Rectal haemorrhage [Recovered/Resolved]
